FAERS Safety Report 10210046 (Version 1)
Quarter: 2014Q2

REPORT INFORMATION
  Report Type: Spontaneous
  Country: US (occurrence: None)
  Receive Date: 20140528
  Receipt Date: 20140528
  Transmission Date: 20141212
  Serious: Yes (Death, Hospitalization, Other)
  Sender: FDA-Public Use
  Company Number: UTC-046394

PATIENT
  Age: 65 Year
  Sex: Male
  Weight: 77.1 kg

DRUGS (4)
  1. REMODULIN [Suspect]
     Indication: PULMONARY ARTERIAL HYPERTENSION
     Route: 058
     Dates: start: 20140208, end: 20140331
  2. REMODULIN [Suspect]
     Indication: SYSTEMIC SCLEROSIS
     Route: 058
     Dates: start: 20140208, end: 20140331
  3. LETAIRIS (AMBRISENTAN) [Concomitant]
  4. REVATIO (SILDENAFIL CITRATE) (SILDENAFIL CITRATE) [Concomitant]

REACTIONS (13)
  - Bradycardia [None]
  - Renal failure chronic [None]
  - Clostridium difficile colitis [None]
  - Sepsis [None]
  - Renal impairment [None]
  - Dyspnoea [None]
  - Fluid overload [None]
  - Pulmonary fibrosis [None]
  - Scleroderma renal crisis [None]
  - Aspiration [None]
  - Pulseless electrical activity [None]
  - Cardiac arrest [None]
  - Haemodialysis [None]
